FAERS Safety Report 8962407 (Version 1)
Quarter: 2012Q4

REPORT INFORMATION
  Report Type: 
  Country: US (occurrence: None)
  Receive Date: 20121211
  Receipt Date: 20121211
  Transmission Date: 20130627
  Serious: Yes (Hospitalization)
  Sender: FDA-Public Use
  Company Number: None

PATIENT
  Sex: Male
  Weight: 79.1 kg

DRUGS (1)
  1. CISPLATIN [Suspect]

REACTIONS (10)
  - Mucosal inflammation [None]
  - Skin reaction [None]
  - Candidiasis [None]
  - Oedema peripheral [None]
  - Deep vein thrombosis [None]
  - Febrile neutropenia [None]
  - Bloody discharge [None]
  - White blood cell count decreased [None]
  - Platelet count decreased [None]
  - Haemoglobin decreased [None]
